FAERS Safety Report 7943568-0 (Version None)
Quarter: 2011Q4

REPORT INFORMATION
  Report Type: 
  Country: None (occurrence: None)
  Receive Date: 20111128
  Receipt Date: 20111125
  Transmission Date: 20120403
  Serious: Yes (Congenital Anomaly)
  Sender: FDA-Public Use
  Company Number: GXKR2011DE003306

PATIENT

DRUGS (2)
  1. FOLIC ACID [Concomitant]
     Indication: PROPHYLAXIS OF NEURAL TUBE DEFECT
     Dosage: UNK UKN, UNK
     Route: 064
  2. CITALOPRAM HYDROBROMIDE [Suspect]
     Dosage: MATERNAL DOSE: 20 MG, QD
     Route: 064

REACTIONS (3)
  - RENAL DYSPLASIA [None]
  - LIMB MALFORMATION [None]
  - FOETAL EXPOSURE DURING PREGNANCY [None]
